FAERS Safety Report 5244110-8 (Version None)
Quarter: 2007Q1

REPORT INFORMATION
  Report Type: 
  Country: None (occurrence: None)
  Receive Date: 20070216
  Receipt Date: 20070202
  Transmission Date: 20070707
  Serious: Yes (Death, Life-Threatening)
  Sender: FDA-Public Use
  Company Number: 2007US000177

PATIENT
  Age: 60 Year
  Sex: Male

DRUGS (7)
  1. AMBISOME [Suspect]
     Indication: PNEUMONIA FUNGAL
     Dosage: 150 MG, IV DRIP
     Route: 041
     Dates: start: 20061201, end: 20061224
  2. MINOCYCLINE HCL [Concomitant]
  3. MEROPEN (MEROPENEM) [Concomitant]
  4. MORPHINE [Concomitant]
  5. CIPROXAN (CIPROFLOXAXIN HYDROCHLORIDE) [Concomitant]
  6. VANCOMYCIN HYDROCHLORIDE [Concomitant]
  7. ACICLOVIR (ACICLOVIR SODIUM) [Concomitant]

REACTIONS (9)
  - BLOOD ELECTROLYTES ABNORMAL [None]
  - DEPRESSED LEVEL OF CONSCIOUSNESS [None]
  - GASTROINTESTINAL HAEMORRHAGE [None]
  - GENERAL PHYSICAL HEALTH DETERIORATION [None]
  - HYPERKALAEMIA [None]
  - HYPERNATRAEMIA [None]
  - LYMPHOMA [None]
  - MALIGNANT NEOPLASM PROGRESSION [None]
  - ORAL INTAKE REDUCED [None]
